FAERS Safety Report 12169034 (Version 2)
Quarter: 2016Q1

REPORT INFORMATION
  Report Type: Spontaneous
  Country: KR (occurrence: KR)
  Receive Date: 20160310
  Receipt Date: 20160311
  Transmission Date: 20160526
  Serious: Yes (Hospitalization, Other)
  Sender: FDA-Public Use
  Company Number: KR-009507513-1603KOR003366

PATIENT
  Age: 70 Year
  Sex: Male

DRUGS (2)
  1. ONCOTICE [Suspect]
     Active Substance: BACILLUS CALMETTE-GUERIN SUBSTRAIN TICE LIVE ANTIGEN
     Indication: BLADDER TRANSITIONAL CELL CARCINOMA
     Dosage: UNK , 3 CYCLES (13 MONTHS, 10 MONTHS AND 1 MONTH PRIOR TO THE PRESENTATION
     Route: 043
  2. ONCOTICE [Suspect]
     Active Substance: BACILLUS CALMETTE-GUERIN SUBSTRAIN TICE LIVE ANTIGEN
     Indication: BLADDER CANCER
     Dosage: 12.5 MG, EVERY WEEK FOR 6 WEEKS
     Route: 043

REACTIONS (2)
  - Infective aneurysm [Recovered/Resolved]
  - Infective spondylitis [Recovered/Resolved]
